FAERS Safety Report 7031381-0 (Version None)
Quarter: 2010Q4

REPORT INFORMATION
  Report Type: 
  Country: None (occurrence: None)
  Receive Date: 20101006
  Receipt Date: 20101001
  Transmission Date: 20110411
  Serious: Yes (Hospitalization)
  Sender: FDA-Public Use
  Company Number: LV-AMGEN-KDC438555

PATIENT
  Sex: Female

DRUGS (4)
  1. DENOSUMAB [Suspect]
     Indication: OSTEOPOROSIS POSTMENOPAUSAL
     Route: 058
     Dates: start: 20080303
  2. DENOSUMAB - STUDY PROCEDURE [Suspect]
  3. SILYMARIN [Concomitant]
  4. ESSENTIALE FORTE [Concomitant]

REACTIONS (1)
  - LICHENOID KERATOSIS [None]
